FAERS Safety Report 8946972 (Version 2)
Quarter: 2013Q1

REPORT INFORMATION
  Report Type: Report from Study
  Country: JP (occurrence: JP)
  Receive Date: 20121205
  Receipt Date: 20130118
  Transmission Date: 20140127
  Serious: Yes (Death, Hospitalization)
  Sender: FDA-Public Use
  Company Number: JP-ACTELION-A-CH2012-70376

PATIENT
  Age: 36 Year
  Sex: Female
  Weight: 41.4 kg

DRUGS (9)
  1. TRACLEER [Suspect]
     Indication: PULMONARY ARTERIAL HYPERTENSION
     Dosage: 62.5 MG, BID
     Route: 048
     Dates: start: 20111020, end: 20120408
  2. PREDNISOLONE [Suspect]
     Indication: MIXED CONNECTIVE TISSUE DISEASE
     Dosage: 20 MG, QD
     Route: 048
     Dates: start: 20111008, end: 20111120
  3. PREDNISOLONE [Suspect]
     Dosage: 30 MG, QD
     Route: 048
     Dates: start: 20111121, end: 20120408
  4. BERAPROST SODIUM [Concomitant]
  5. RABEPRAZOLE SODIUM [Concomitant]
  6. REBAMIPIDE [Concomitant]
  7. MENATETRENONE [Concomitant]
  8. BROTIZOLAM [Concomitant]
  9. FERROUS CITRATE [Concomitant]

REACTIONS (10)
  - Mixed connective tissue disease [Fatal]
  - Concomitant disease aggravated [Fatal]
  - Liver function test abnormal [Not Recovered/Not Resolved]
  - Gamma-glutamyltransferase increased [Not Recovered/Not Resolved]
  - Aspartate aminotransferase increased [Not Recovered/Not Resolved]
  - Alanine aminotransferase increased [Not Recovered/Not Resolved]
  - Blood alkaline phosphatase increased [Not Recovered/Not Resolved]
  - White blood cell count increased [Not Recovered/Not Resolved]
  - Cardio-respiratory arrest [Fatal]
  - Loss of consciousness [Fatal]
